FAERS Safety Report 10047230 (Version 1)
Quarter: 2014Q1

REPORT INFORMATION
  Report Type: Spontaneous
  Country: US (occurrence: US)
  Receive Date: 20140331
  Receipt Date: 20140331
  Transmission Date: 20141002
  Serious: No
  Sender: FDA-Public Use
  Company Number: US-MYLANLABS-2013S1022185

PATIENT
  Age: 56 Year
  Sex: Male
  Weight: 86.18 kg

DRUGS (4)
  1. FENTANYL TRANSDERMAL SYSTEM [Suspect]
     Indication: BACK PAIN
     Dosage: CHANGED Q72H
     Route: 062
     Dates: start: 20130909
  2. HYDROCODONE [Concomitant]
     Indication: PAIN
     Route: 048
  3. VITAMIN C [Concomitant]
  4. VENLAFAXINE [Concomitant]
     Indication: DEPRESSION

REACTIONS (2)
  - Drug withdrawal syndrome [Not Recovered/Not Resolved]
  - Drug screen negative [Not Recovered/Not Resolved]
